FAERS Safety Report 11109328 (Version 1)
Quarter: 2015Q2

REPORT INFORMATION
  Report Type: Spontaneous
  Country: US (occurrence: None)
  Receive Date: 20150511
  Receipt Date: 20150511
  Transmission Date: 20150821
  Serious: Yes (Hospitalization)
  Sender: FDA-Public Use
  Company Number: AMAG201500381

PATIENT
  Age: 29 Week

DRUGS (1)
  1. MAKENA [Suspect]
     Active Substance: HYDROXYPROGESTERONE CAPROATE
     Indication: EXPOSURE DURING PREGNANCY
     Dosage: 250 MG, WEEKLY, INTRAMUSCULAR
     Route: 030
     Dates: start: 20150209, end: 20150413

REACTIONS (2)
  - Foetal distress syndrome [None]
  - Foetal exposure during pregnancy [None]

NARRATIVE: CASE EVENT DATE: 20150422
